FAERS Safety Report 5298286-7 (Version None)
Quarter: 2007Q1

REPORT INFORMATION
  Report Type: 
  Country: None (occurrence: None)
  Receive Date: 20070205
  Receipt Date: 20060214
  Transmission Date: 20070707
  Serious: Yes (Hospitalization, Other)
  Sender: FDA-Public Use
  Company Number: US200602001944

PATIENT
  Age: 81 Year
  Sex: Female
  Weight: 98.4 kg

DRUGS (1)
  1. EVISTA [Suspect]
     Dosage: 60 ORAL
     Route: 048
     Dates: start: 20010801

REACTIONS (1)
  - DEEP VEIN THROMBOSIS [None]
